FAERS Safety Report 5596965-5 (Version None)
Quarter: 2007Q4

REPORT INFORMATION
  Report Type: 
  Country: None (occurrence: None)
  Receive Date: 20071221
  Receipt Date: 20071011
  Transmission Date: 20080405
  Serious: No
  Sender: FDA-Public Use
  Company Number: SPV1-2007-04528

PATIENT
  Age: 12 Year
  Sex: Female

DRUGS (1)
  1. VYVANSE [Suspect]
     Dosage: 30 MG

REACTIONS (5)
  - ABNORMAL BEHAVIOUR [None]
  - ANGER [None]
  - DECREASED APPETITE [None]
  - INSOMNIA [None]
  - IRRITABILITY [None]
